FAERS Safety Report 11969868 (Version 1)
Quarter: 2016Q1

REPORT INFORMATION
  Report Type: Spontaneous
  Country: US (occurrence: None)
  Receive Date: 20160127
  Receipt Date: 20160127
  Transmission Date: 20160526
  Serious: Yes (Disabling)
  Sender: FDA-Public Use
  Company Number: None

PATIENT
  Age: 64 Year
  Sex: Male
  Weight: 86.18 kg

DRUGS (4)
  1. LOW DOSE ASPIRIN [Concomitant]
     Active Substance: ASPIRIN
  2. HBP MEDS IADT (LUPRON) [Concomitant]
  3. FORTESTA [Suspect]
     Active Substance: TESTOSTERONE
     Indication: BLOOD TESTOSTERONE DECREASED
     Dosage: ONE PUMP ONCE DAILY APPLIED TO A SURFACE, USUALLY THE SKIN
     Dates: start: 20111012, end: 20121012
  4. ALLERGY MEDS [Concomitant]

REACTIONS (1)
  - Prostate cancer recurrent [None]

NARRATIVE: CASE EVENT DATE: 20121012
